FAERS Safety Report 18147417 (Version 1)
Quarter: 2020Q3

REPORT INFORMATION
  Report Type: Report from Study
  Country: NL (occurrence: US)
  Receive Date: 20200813
  Receipt Date: 20200813
  Transmission Date: 20201103
  Serious: Yes (Congenital Anomaly, Other)
  Sender: FDA-Public Use
  Company Number: NL-JNJFOC-20200815338

PATIENT

DRUGS (2)
  1. METHOTREXATE. [Suspect]
     Active Substance: METHOTREXATE
     Indication: COLITIS ULCERATIVE
     Route: 064
  2. SIMPONI [Suspect]
     Active Substance: GOLIMUMAB
     Indication: PRODUCT USED FOR UNKNOWN INDICATION
     Route: 064

REACTIONS (22)
  - Trisomy 21 [Unknown]
  - Jaundice [Unknown]
  - Milk allergy [Unknown]
  - Respiratory distress [Unknown]
  - Colitis ulcerative [Unknown]
  - Heart disease congenital [Unknown]
  - Rash [Unknown]
  - Foetal exposure during pregnancy [Unknown]
  - Bradycardia foetal [Unknown]
  - Atrial septal defect [Unknown]
  - Cataract congenital [Unknown]
  - Ellis-van Creveld syndrome [Unknown]
  - Galactosaemia [Unknown]
  - Fungal infection [Unknown]
  - Low birth weight baby [Unknown]
  - Premature baby [Unknown]
  - Turner^s syndrome [Unknown]
  - Gastric disorder [Unknown]
  - Anencephaly [Unknown]
  - Foetal macrosomia [Unknown]
  - Sepsis [Unknown]
  - Selective eating disorder [Unknown]
